FAERS Safety Report 9137889 (Version 1)
Quarter: 2013Q1

REPORT INFORMATION
  Report Type: Spontaneous
  Country: BR (occurrence: BR)
  Receive Date: 20130304
  Receipt Date: 20130304
  Transmission Date: 20140127
  Serious: Yes (Hospitalization, Other)
  Sender: FDA-Public Use
  Company Number: BR-BRISTOL-MYERS SQUIBB COMPANY-17426057

PATIENT
  Age: 68 Year
  Sex: Male
  Weight: 78 kg

DRUGS (4)
  1. ONGLYZA TABS 5 MG [Suspect]
     Dosage: 1 TAB/DAY
     Route: 048
  2. DIAMICRON [Concomitant]
  3. ATENOLOL [Concomitant]
  4. CALCIUM [Concomitant]

REACTIONS (2)
  - Dengue fever [Unknown]
  - Diabetes mellitus [Unknown]
